FAERS Safety Report 21770514 (Version 2)
Quarter: 2023Q1

REPORT INFORMATION
  Report Type: Spontaneous
  Country: JP (occurrence: JP)
  Receive Date: 20221223
  Receipt Date: 20230211
  Transmission Date: 20230418
  Serious: Yes (Other)
  Sender: FDA-Public Use
  Company Number: JP-CHUGAI-2022050873AA

PATIENT
  Age: 74 Year
  Sex: Male

DRUGS (1)
  1. ACTEMRA [Suspect]
     Active Substance: TOCILIZUMAB
     Indication: Takayasu^s arteritis
     Dosage: 162 MILLIGRAM, ONCE/2WEEKS
     Route: 058

REACTIONS (2)
  - Cardiac failure [Unknown]
  - Off label use [Unknown]
